FAERS Safety Report 11054563 (Version 1)
Quarter: 2015Q2

REPORT INFORMATION
  Report Type: Spontaneous
  Country: US (occurrence: None)
  Receive Date: 20150421
  Receipt Date: 20150421
  Transmission Date: 20150821
  Serious: Yes (Disabling, Other)
  Sender: FDA-Public Use
  Company Number: None

PATIENT
  Age: 58 Year
  Sex: Female
  Weight: 49.44 kg

DRUGS (10)
  1. PRO AIR HFA [Concomitant]
  2. MULTI VIT [Concomitant]
  3. XANAX [Concomitant]
     Active Substance: ALPRAZOLAM
  4. SOMA [Concomitant]
     Active Substance: CARISOPRODOL
  5. FISH OIL [Concomitant]
     Active Substance: FISH OIL
  6. PROBIOTIC [Concomitant]
     Active Substance: PROBIOTICS NOS
  7. ATORVASTATIN CALCIUM. [Suspect]
     Active Substance: ATORVASTATIN CALCIUM
     Indication: BLOOD CHOLESTEROL INCREASED
     Dosage: 1 ONCE DAILY BY MOUTH
     Route: 048
     Dates: start: 20150224, end: 20150317
  8. VITAMIN C [Concomitant]
     Active Substance: ASCORBIC ACID
  9. CALCIUM [Concomitant]
     Active Substance: CALCIUM
  10. BABY ASPIRIN [Concomitant]
     Active Substance: ASPIRIN

REACTIONS (4)
  - Abnormal faeces [None]
  - Dyspepsia [None]
  - Chromaturia [None]
  - Nausea [None]

NARRATIVE: CASE EVENT DATE: 20150303
